FAERS Safety Report 10333447 (Version 1)
Quarter: 2014Q3

REPORT INFORMATION
  Report Type: Spontaneous
  Country: US (occurrence: US)
  Receive Date: 20140722
  Receipt Date: 20140722
  Transmission Date: 20150326
  Serious: Yes (Other)
  Sender: FDA-Public Use
  Company Number: US-SA-2014SA019976

PATIENT
  Sex: Male
  Weight: 124 kg

DRUGS (3)
  1. AMBIEN [Suspect]
     Active Substance: ZOLPIDEM TARTRATE
     Indication: SLEEP DISORDER
     Dosage: DOSE-1-2 TABLET
     Route: 048
  2. AMBIEN [Suspect]
     Active Substance: ZOLPIDEM TARTRATE
     Indication: SLEEP DISORDER
     Dosage: TAKEN FROM-20 YEARS AGO
     Route: 048
  3. AMBIEN CR [Suspect]
     Active Substance: ZOLPIDEM TARTRATE
     Indication: SLEEP DISORDER
     Dosage: DOSE- TWO TABLETS
     Route: 048

REACTIONS (4)
  - Drug dependence [Unknown]
  - Drug tolerance [Unknown]
  - Overdose [Unknown]
  - Back disorder [Not Recovered/Not Resolved]
